FAERS Safety Report 7574984-7 (Version None)
Quarter: 2011Q2

REPORT INFORMATION
  Report Type: 
  Country: None (occurrence: None)
  Receive Date: 20110627
  Receipt Date: 20110622
  Transmission Date: 20111010
  Serious: Yes (Hospitalization)
  Sender: FDA-Public Use
  Company Number: IT-PFIZER INC-2011139287

PATIENT
  Age: 44 Year
  Sex: Male

DRUGS (4)
  1. LYRICA [Suspect]
     Indication: NEURALGIA
     Dosage: 75 MG DAILY
     Route: 048
     Dates: start: 20110101, end: 20110601
  2. LYRICA [Suspect]
     Dosage: 75 MG, 2X/DAY
     Route: 048
     Dates: start: 20110605
  3. NEXIUM [Concomitant]
     Indication: DUODENAL ULCER
     Dosage: 20 MG, 1X/DAY
     Route: 048
     Dates: start: 19980101
  4. OMNIC [Concomitant]
     Indication: BENIGN PROSTATIC HYPERPLASIA
     Dosage: 0.4 MG, 1X/DAY
     Route: 048

REACTIONS (3)
  - DRUG INEFFECTIVE [None]
  - CHEST PAIN [None]
  - DUODENAL ULCER HAEMORRHAGE [None]
